FAERS Safety Report 5491025-6 (Version None)
Quarter: 2007Q4

REPORT INFORMATION
  Report Type: 
  Country: None (occurrence: None)
  Receive Date: 20071019
  Receipt Date: 20070123
  Transmission Date: 20080405
  Serious: Yes (Other)
  Sender: FDA-Public Use
  Company Number: US-BRISTOL-MYERS SQUIBB COMPANY-13652466

PATIENT

DRUGS (1)
  1. CAFCIT [Suspect]
     Indication: APNOEA

REACTIONS (1)
  - APNOEA [None]
